FAERS Safety Report 7768059-1 (Version None)
Quarter: 2011Q3

REPORT INFORMATION
  Report Type: 
  Country: None (occurrence: None)
  Receive Date: 20110922
  Receipt Date: 20110914
  Transmission Date: 20111222
  Serious: Yes (Hospitalization)
  Sender: FDA-Public Use
  Company Number: DE-AMGEN-DEUSP2011014674

PATIENT
  Age: 18 Year
  Sex: Male

DRUGS (14)
  1. BLEOMYCIN SULFATE [Concomitant]
     Indication: HODGKIN'S DISEASE
     Dosage: 10 MG/M2, UNK
     Route: 042
     Dates: start: 20110224
  2. PANTOPRAZOLE [Concomitant]
     Dosage: UNK
     Dates: start: 20110303, end: 20110309
  3. ACYCLOVIR [Concomitant]
     Dosage: UNK
  4. SULFAMETHOXAZOLE AND TRIMETHOPRIM [Concomitant]
  5. PREDNISONE [Concomitant]
     Indication: HODGKIN'S DISEASE
     Dosage: 40 MG/M2, UNK
     Route: 065
     Dates: start: 20110224
  6. ETOPOSIDE [Concomitant]
     Indication: HODGKIN'S DISEASE
     Dosage: 200 MG/M2, UNK
     Route: 065
     Dates: start: 20110224
  7. COTRIM DS [Concomitant]
  8. CIPROFLOXACIN [Concomitant]
     Dosage: UNK
     Dates: start: 20110303
  9. CYCLOPHOSPHAMIDE [Concomitant]
     Indication: HODGKIN'S DISEASE
     Dosage: 1250 MG/M2, UNK
     Route: 065
     Dates: start: 20110224
  10. RITUXIMAB [Concomitant]
     Indication: HODGKIN'S DISEASE
     Dosage: 375 MG/M2, UNK
     Route: 042
     Dates: start: 20110316
  11. PROCARBAZINE HYDROCHLORIDE [Concomitant]
     Indication: HODGKIN'S DISEASE
     Dosage: 100 MG/M2, UNK
     Route: 042
     Dates: start: 20110224
  12. DOXORUBICIN HCL [Concomitant]
     Indication: HODGKIN'S DISEASE
     Dosage: 35 MG/M2, UNK
     Route: 042
     Dates: start: 20110224, end: 20110309
  13. VINCRISTINE [Concomitant]
     Indication: HODGKIN'S DISEASE
     Dosage: 1.4 MG/M2, UNK
     Route: 065
     Dates: start: 20110224
  14. FILGRASTIM [Suspect]
     Indication: HODGKIN'S DISEASE
     Dosage: UNK UNK, QD
     Route: 065
     Dates: start: 20110303, end: 20110309

REACTIONS (9)
  - C-REACTIVE PROTEIN INCREASED [None]
  - PYREXIA [None]
  - LEUKOPENIA [None]
  - C-REACTIVE PROTEIN DECREASED [None]
  - STAPHYLOCOCCUS TEST POSITIVE [None]
  - BONE PAIN [None]
  - DEVICE RELATED INFECTION [None]
  - ARTHRALGIA [None]
  - SEPSIS [None]
